FAERS Safety Report 14146900 (Version 3)
Quarter: 2017Q4

REPORT INFORMATION
  Report Type: Spontaneous
  Country: PL (occurrence: PL)
  Receive Date: 20171031
  Receipt Date: 20171201
  Transmission Date: 20180321
  Serious: Yes (Other)
  Sender: FDA-Public Use
  Company Number: PL-JNJFOC-20171028516

PATIENT
  Sex: Female

DRUGS (1)
  1. ORTHO EVRA [Suspect]
     Active Substance: ETHINYL ESTRADIOL\NORELGESTROMIN
     Indication: CONTRACEPTION
     Dosage: SINCE UNSPECIFIED YEAR IN MAR
     Route: 065

REACTIONS (12)
  - Hyperacusis [Unknown]
  - Asthenia [Unknown]
  - Formication [Unknown]
  - Diarrhoea [Unknown]
  - Affective disorder [Unknown]
  - Photosensitivity reaction [Unknown]
  - Weight increased [Unknown]
  - Loss of libido [Unknown]
  - Administration site pustule [Unknown]
  - Nausea [Unknown]
  - Breast pain [Unknown]
  - Administration site rash [Unknown]
